FAERS Safety Report 12719587 (Version 2)
Quarter: 2016Q3

REPORT INFORMATION
  Report Type: Report from Study
  Country: CN (occurrence: CN)
  Receive Date: 20160907
  Receipt Date: 20160922
  Transmission Date: 20161109
  Serious: Yes (Hospitalization)
  Sender: FDA-Public Use
  Company Number: PHHY2016CN119225

PATIENT
  Age: 27 Year
  Sex: Male
  Weight: 78 kg

DRUGS (5)
  1. MYFORTIC [Suspect]
     Active Substance: MYCOPHENOLATE SODIUM
     Indication: RENAL TRANSPLANT
     Dosage: UNK UNK, QD
     Route: 048
  2. FU MEI XIN//FOSFOMYCIN SODIUM [Concomitant]
     Indication: PROPHYLAXIS AGAINST TRANSPLANT REJECTION
     Dosage: 2 MG, UNK
     Route: 065
     Dates: start: 20160601
  3. MYCOPHENOLATE MOFETIL. [Concomitant]
     Active Substance: MYCOPHENOLATE MOFETIL
     Indication: PROPHYLAXIS AGAINST TRANSPLANT REJECTION
     Dosage: 1500 MG, UNK
     Route: 065
     Dates: start: 20160614
  4. METHYLPREDNISOLONUM [Concomitant]
     Active Substance: METHYLPREDNISOLONE
     Indication: PROPHYLAXIS AGAINST TRANSPLANT REJECTION
     Dosage: 4 MG, UNK
     Route: 065
     Dates: start: 20160726
  5. MYFORTIC [Suspect]
     Active Substance: MYCOPHENOLATE SODIUM
     Indication: KIDNEY TRANSPLANT REJECTION

REACTIONS (3)
  - Postoperative wound complication [Recovered/Resolved]
  - Procedural pain [Recovered/Resolved]
  - Post procedural discharge [Recovered/Resolved]

NARRATIVE: CASE EVENT DATE: 20160815
